FAERS Safety Report 5673178-X (Version None)
Quarter: 2008Q1

REPORT INFORMATION
  Report Type: 
  Country: None (occurrence: None)
  Receive Date: 20080319
  Receipt Date: 20080307
  Transmission Date: 20080703
  Serious: Yes (Other)
  Sender: FDA-Public Use
  Company Number: JP-ROCHE-552976

PATIENT
  Age: 24 Month
  Sex: Female
  Weight: 14 kg

DRUGS (5)
  1. TAMIFLU [Suspect]
     Route: 048
     Dates: start: 20080301, end: 20080301
  2. TAMIFLU [Suspect]
     Dosage: DOSE INCREASED
     Route: 048
     Dates: start: 20080302, end: 20080303
  3. TAMIFLU [Suspect]
     Dosage: DOSE DECREASED
     Route: 048
     Dates: start: 20080304, end: 20080304
  4. DIAPP [Suspect]
     Indication: FEBRILE CONVULSION
     Route: 054
     Dates: start: 20080229, end: 20080301
  5. ANYRUME [Suspect]
     Route: 054
     Dates: start: 20080301, end: 20080302

REACTIONS (3)
  - ABNORMAL BEHAVIOUR [None]
  - AGITATION [None]
  - DELIRIUM [None]
